FAERS Safety Report 16624232 (Version 1)
Quarter: 2019Q3

REPORT INFORMATION
  Report Type: Spontaneous
  Country: US (occurrence: US)
  Receive Date: 20190724
  Receipt Date: 20190724
  Transmission Date: 20191004
  Serious: No
  Sender: FDA-Public Use
  Company Number: US-DRREDDYS-USA/USA/19/0112198

PATIENT
  Age: 92 Year
  Sex: Female
  Weight: 45.9 kg

DRUGS (2)
  1. MULTIVITAMINS [Concomitant]
     Active Substance: VITAMINS
     Indication: PRODUCT USED FOR UNKNOWN INDICATION
  2. CIPROFLOXACIN 250 MG [Suspect]
     Active Substance: CIPROFLOXACIN
     Indication: SINUSITIS
     Route: 048
     Dates: start: 20190704, end: 20190714

REACTIONS (3)
  - Peripheral swelling [Not Recovered/Not Resolved]
  - Tenderness [Not Recovered/Not Resolved]
  - Pain in extremity [Not Recovered/Not Resolved]

NARRATIVE: CASE EVENT DATE: 20190715
